FAERS Safety Report 9016760 (Version 1)
Quarter: 2013Q1

REPORT INFORMATION
  Report Type: Spontaneous
  Country: US (occurrence: US)
  Receive Date: 20130116
  Receipt Date: 20130116
  Transmission Date: 20140127
  Serious: No
  Sender: FDA-Public Use
  Company Number: US-PFIZER INC-2013017143

PATIENT
  Age: 6 Year
  Sex: Female
  Weight: 16.78 kg

DRUGS (1)
  1. GENOTROPIN [Suspect]
     Indication: PRADER-WILLI SYNDROME
     Dosage: UNK
     Dates: start: 200612

REACTIONS (1)
  - Scoliosis [Unknown]
